FAERS Safety Report 5467668-2 (Version None)
Quarter: 2007Q3

REPORT INFORMATION
  Report Type: 
  Country: None (occurrence: None)
  Receive Date: 20070921
  Receipt Date: 20070912
  Transmission Date: 20080115
  Serious: Yes (Hospitalization)
  Sender: FDA-Public Use
  Company Number: 2007AL003854

PATIENT
  Age: 39 Year
  Sex: Male

DRUGS (2)
  1. DIAZEPAM TAB [Suspect]
     Indication: ANXIETY
     Dosage: 5 MG; QD; PO
     Route: 048
     Dates: start: 20060101
  2. STELAZINE [Concomitant]

REACTIONS (4)
  - CONVULSION [None]
  - DRUG INTERACTION [None]
  - LOSS OF CONSCIOUSNESS [None]
  - MUSCLE SPASMS [None]
